FAERS Safety Report 14840944 (Version 1)
Quarter: 2018Q2

REPORT INFORMATION
  Report Type: Spontaneous
  Country: US (occurrence: US)
  Receive Date: 20180503
  Receipt Date: 20180503
  Transmission Date: 20180711
  Serious: No
  Sender: FDA-Public Use
  Company Number: US-PFIZER INC-2018181053

PATIENT
  Age: 57 Year
  Sex: Female

DRUGS (3)
  1. DOXYCYCLINE CALCIUM [Suspect]
     Active Substance: DOXYCYCLINE CALCIUM
     Dosage: UNK
  2. PROVENTOL [Suspect]
     Active Substance: CROMOLYN SODIUM
     Dosage: UNK
  3. VIBRAMYCIN [Suspect]
     Active Substance: DOXYCYCLINE
     Dosage: UNK

REACTIONS (1)
  - Drug hypersensitivity [Unknown]
